FAERS Safety Report 23041895 (Version 1)
Quarter: 2023Q4

REPORT INFORMATION
  Report Type: Spontaneous
  Country: NL (occurrence: NL)
  Receive Date: 20231007
  Receipt Date: 20231007
  Transmission Date: 20240110
  Serious: Yes (Other)
  Sender: FDA-Public Use
  Company Number: None

PATIENT
  Age: 76 Year
  Sex: Female

DRUGS (2)
  1. AMLODIPINE [Suspect]
     Active Substance: AMLODIPINE BESYLATE
     Indication: Hypertension
     Dosage: 1D1, STRENGTH: 10MG
     Dates: start: 20230401, end: 20230812
  2. LOSARTAN POTASSIUM [Suspect]
     Active Substance: LOSARTAN POTASSIUM
     Indication: Hypertension
     Dosage: 1D1, STRENGTH: 100MG
     Dates: start: 20230401

REACTIONS (4)
  - Dizziness postural [Unknown]
  - Ankle fracture [Unknown]
  - Concussion [Unknown]
  - Fall [Recovered/Resolved with Sequelae]
